FAERS Safety Report 5963177-2 (Version None)
Quarter: 2008Q4

REPORT INFORMATION
  Report Type: 
  Country: None (occurrence: None)
  Receive Date: 20081124
  Receipt Date: 20081117
  Transmission Date: 20090506
  Serious: Yes (Hospitalization, Disabling, Other)
  Sender: FDA-Public Use
  Company Number: TR-ASTRAZENECA-2008SE05349

PATIENT
  Age: 21614 Day
  Sex: Female

DRUGS (6)
  1. ROSUVASTATIN [Suspect]
     Indication: RENAL FAILURE CHRONIC
     Route: 048
  2. EPREX [Concomitant]
     Indication: ANAEMIA
     Route: 048
     Dates: end: 20070710
  3. EPREX [Concomitant]
     Route: 058
     Dates: end: 20070710
  4. CALCIUM CARBONATE [Concomitant]
     Route: 048
     Dates: end: 20070710
  5. PHOSEX [Concomitant]
     Indication: BLOOD PHOSPHORUS DECREASED
     Route: 048
  6. BECOZYME C [Concomitant]
     Indication: HYPOVITAMINOSIS
     Route: 048
     Dates: end: 20070710

REACTIONS (1)
  - CEREBROVASCULAR ACCIDENT [None]
